FAERS Safety Report 17470380 (Version 1)
Quarter: 2020Q1

REPORT INFORMATION
  Report Type: Report from Study
  Country: None (occurrence: CO)
  Receive Date: 20200228
  Receipt Date: 20200228
  Transmission Date: 20200409
  Serious: Yes (Other)
  Sender: FDA-Public Use
  Company Number: CO-ABBVIE-20K-036-3294593-00

PATIENT
  Sex: Male
  Weight: 67 kg

DRUGS (2)
  1. HUMIRA [Suspect]
     Active Substance: ADALIMUMAB
     Indication: PSORIASIS
     Route: 058
  2. HUMIRA [Suspect]
     Active Substance: ADALIMUMAB
     Indication: PSORIASIS
     Route: 058
     Dates: start: 20160420

REACTIONS (4)
  - Depression [Recovering/Resolving]
  - Stress at work [Recovering/Resolving]
  - Immune system disorder [Unknown]
  - Sleep disorder [Recovering/Resolving]

NARRATIVE: CASE EVENT DATE: 2018
